FAERS Safety Report 13593184 (Version 1)
Quarter: 2017Q2

REPORT INFORMATION
  Report Type: Spontaneous
  Country: JP (occurrence: JP)
  Receive Date: 20170530
  Receipt Date: 20170530
  Transmission Date: 20170830
  Serious: Yes (Death)
  Sender: FDA-Public Use
  Company Number: JP-MYLANLABS-2017M1032141

PATIENT

DRUGS (5)
  1. UTERON [Concomitant]
     Active Substance: RITODRINE HYDROCHLORIDE
     Indication: THREATENED LABOUR
     Route: 064
     Dates: start: 20170219, end: 20170223
  2. MAGSENT [Concomitant]
     Active Substance: DEXTROSE\MAGNESIUM SULFATE HEPTAHYDRATE
     Indication: THREATENED LABOUR
     Route: 064
     Dates: start: 20170219, end: 20170223
  3. ERYTHROCIN [Suspect]
     Active Substance: ERYTHROMYCIN LACTOBIONATE
     Indication: INFECTION PROPHYLAXIS
     Dosage: 1500 MG, QD
     Route: 064
     Dates: start: 20170219, end: 20170223
  4. FESIN                              /00023550/ [Concomitant]
     Active Substance: IRON SUCROSE
     Indication: ANAEMIA
     Route: 064
     Dates: start: 20170221
  5. VICCILLIN                          /00000501/ [Concomitant]
     Indication: INFECTION PROPHYLAXIS
     Route: 064
     Dates: start: 20170219, end: 20170222

REACTIONS (4)
  - Death neonatal [Fatal]
  - Maternal drugs affecting foetus [None]
  - Caesarean section [None]
  - Foetal exposure during pregnancy [Unknown]

NARRATIVE: CASE EVENT DATE: 20170224
